FAERS Safety Report 18997905 (Version 1)
Quarter: 2021Q1

REPORT INFORMATION
  Report Type: Spontaneous
  Country: PL (occurrence: PL)
  Receive Date: 20210311
  Receipt Date: 20210311
  Transmission Date: 20210420
  Serious: Yes (Other)
  Sender: FDA-Public Use
  Company Number: PL-AMGEN-POLSP2021032502

PATIENT
  Age: 65 Year
  Sex: Female

DRUGS (3)
  1. PEGFILGRASTIM [Suspect]
     Active Substance: PEGFILGRASTIM
     Indication: PROPHYLAXIS
     Dosage: UNK
     Route: 065
     Dates: start: 201810, end: 201907
  2. DOCETAXEL. [Concomitant]
     Active Substance: DOCETAXEL
     Indication: LUNG ADENOCARCINOMA
     Dosage: 75 MILLIGRAM/SQ. METER, Q3WK
     Route: 042
     Dates: start: 201810, end: 201907
  3. NINTEDANIB [Concomitant]
     Active Substance: NINTEDANIB
     Indication: LUNG ADENOCARCINOMA
     Dosage: 200 MILLIGRAM (2X200 MG ON DAYS 2?21)
     Route: 048
     Dates: start: 201810, end: 201907

REACTIONS (6)
  - Metastases to adrenals [Unknown]
  - Diarrhoea [Unknown]
  - Adenocarcinoma [Unknown]
  - Aspartate aminotransferase increased [Recovered/Resolved]
  - Catheter site infection [Unknown]
  - Alanine aminotransferase increased [Recovered/Resolved]

NARRATIVE: CASE EVENT DATE: 201907
